FAERS Safety Report 18681382 (Version 1)
Quarter: 2020Q4

REPORT INFORMATION
  Report Type: Spontaneous
  Country: GB (occurrence: GB)
  Receive Date: 20201229
  Receipt Date: 20201229
  Transmission Date: 20210114
  Serious: Yes (Other)
  Sender: FDA-Public Use
  Company Number: GB-PURDUE-USA-2020-0192724

PATIENT
  Age: 52 Year
  Sex: Female

DRUGS (6)
  1. RAMIPRIL. [Concomitant]
     Active Substance: RAMIPRIL
     Indication: PRODUCT USED FOR UNKNOWN INDICATION
     Dosage: 1 UNIT, DAILY
     Dates: start: 20200213
  2. OMEPRAZOLE. [Concomitant]
     Active Substance: OMEPRAZOLE
     Indication: PRODUCT USED FOR UNKNOWN INDICATION
     Dosage: 3 UNIT, DAILY [2 MANE 1 NOCTE  FOR 4 WEEKS THEN STEP D...]
     Dates: start: 20190926
  3. BUTEC [Suspect]
     Active Substance: BUPRENORPHINE
     Indication: PRODUCT USED FOR UNKNOWN INDICATION
     Dosage: 1 UNIT, WEEKLY [10MICROGRAMS/HOUR] [STRENGTH 10 MG]
     Route: 062
     Dates: start: 20201109
  4. BUTRANS [Concomitant]
     Active Substance: BUPRENORPHINE
     Indication: PRODUCT USED FOR UNKNOWN INDICATION
     Dosage: 1 UNIT, WEEKLY
     Dates: start: 20200907, end: 20201005
  5. FLUTICASONE FUROATE [Concomitant]
     Active Substance: FLUTICASONE FUROATE
     Indication: PRODUCT USED FOR UNKNOWN INDICATION
     Dosage: 4 UNIT, DAILY [SPRAYS IN EACH NOSTRIL]
     Dates: start: 20190117
  6. GAVISCON ADVANCE                   /00926503/ [Concomitant]
     Active Substance: SODIUM ALGINATE
     Indication: PRODUCT USED FOR UNKNOWN INDICATION
     Dosage: UNK [5ML - 10ML AFTER MEALS AND AT BEDTIME]
     Dates: start: 20181029

REACTIONS (1)
  - Skin burning sensation [Unknown]
